FAERS Safety Report 8633484 (Version 2)
Quarter: 2012Q4

REPORT INFORMATION
  Report Type: 
  Country: AU (occurrence: AU)
  Receive Date: 20120625
  Receipt Date: 20120830
  Transmission Date: 20130627
  Serious: Yes (Hospitalization)
  Sender: FDA-Public Use
  Company Number: PHHY2012AU053162

PATIENT
  Sex: Male

DRUGS (2)
  1. ACLASTA [Suspect]
     Route: 042
     Dates: start: 20100712
  2. ACLASTA [Suspect]
     Route: 042
     Dates: start: 20110630

REACTIONS (2)
  - Pleural effusion [Unknown]
  - Prostate cancer [Unknown]
